FAERS Safety Report 4310990-3 (Version None)
Quarter: 2004Q1

REPORT INFORMATION
  Report Type: 
  Country: None (occurrence: None)
  Receive Date: 20040302
  Receipt Date: 20040218
  Transmission Date: 20041129
  Serious: Yes (Hospitalization, Other)
  Sender: FDA-Public Use
  Company Number: 2004011153

PATIENT
  Age: 73 Year
  Sex: Female
  Weight: 56.6996 kg

DRUGS (3)
  1. NORVASC [Suspect]
     Indication: HYPERTENSION
     Dosage: ORAL
     Route: 048
     Dates: end: 20020101
  2. OXCARBAZEPINE (OXCARBAZEPINE) [Suspect]
     Indication: TREMOR
     Dates: end: 20020101
  3. THYROID TAB [Concomitant]

REACTIONS (7)
  - ANXIETY [None]
  - BLOOD MAGNESIUM DECREASED [None]
  - BLOOD POTASSIUM DECREASED [None]
  - BLOOD PRESSURE INCREASED [None]
  - CARDIAC DISORDER [None]
  - CEREBROVASCULAR ACCIDENT [None]
  - CONVULSION [None]
